FAERS Safety Report 23158664 (Version 1)
Quarter: 2023Q4

REPORT INFORMATION
  Report Type: Spontaneous
  Country: US (occurrence: None)
  Receive Date: 20231106
  Receipt Date: 20231106
  Transmission Date: 20240109
  Serious: Yes (Other)
  Sender: FDA-Public Use
  Company Number: None

PATIENT
  Age: 28 Year
  Sex: Female
  Weight: 120.66 kg

DRUGS (1)
  1. GLATIRAMER ACETATE [Suspect]
     Active Substance: GLATIRAMER ACETATE
     Indication: Multiple sclerosis
     Dosage: FREQUENCY : 3 TIMES A WEEK;?
     Route: 058
     Dates: start: 20220803, end: 20220808

REACTIONS (8)
  - Dizziness [None]
  - Loss of consciousness [None]
  - Muscle spasms [None]
  - Flushing [None]
  - Chills [None]
  - Tremor [None]
  - Swelling face [None]
  - Injection related reaction [None]

NARRATIVE: CASE EVENT DATE: 20220808
